FAERS Safety Report 6293171-6 (Version None)
Quarter: 2009Q3

REPORT INFORMATION
  Report Type: 
  Country: None (occurrence: None)
  Receive Date: 20090731
  Receipt Date: 20090723
  Transmission Date: 20100115
  Serious: No
  Sender: FDA-Public Use
  Company Number: US-B.I. PHARMACEUTICALS,INC./RIDGEFIELD-2009-BP-08734BP

PATIENT
  Age: 23 Year
  Sex: Male

DRUGS (8)
  1. CATAPRES-TTS-1 [Suspect]
     Dosage: 0.2 MG
     Route: 061
     Dates: start: 20090617
  2. CATAPRES-TTS-1 [Suspect]
     Dosage: 0.1 MG
     Route: 061
     Dates: start: 20090610, end: 20090617
  3. LOVENOX [Concomitant]
  4. CASPOFUNGIN [Concomitant]
     Indication: FUNGAL INFECTION
     Route: 042
  5. CHOLESTYRAMINE [Concomitant]
     Indication: BLOOD CHOLESTEROL INCREASED
  6. DAPTOMYCIN [Concomitant]
     Indication: ANTIBIOTIC THERAPY
     Route: 042
  7. HALOPERIDOL [Concomitant]
     Route: 042
  8. HYDROMORPHONE HCL [Concomitant]
     Route: 042

REACTIONS (2)
  - FEELING COLD [None]
  - HYPOTHERMIA [None]
